FAERS Safety Report 7908496-5 (Version None)
Quarter: 2011Q4

REPORT INFORMATION
  Report Type: 
  Country: None (occurrence: None)
  Receive Date: 20111111
  Receipt Date: 20111103
  Transmission Date: 20120403
  Serious: Yes (Other)
  Sender: FDA-Public Use
  Company Number: DE-UCBSA-044500

PATIENT
  Sex: Female

DRUGS (11)
  1. PREDNISOLONE [Concomitant]
     Dates: start: 20101015, end: 20101001
  2. VOLTAREN [Concomitant]
     Indication: RHEUMATOID ARTHRITIS
     Dosage: UNKNOWN DOSE BID
     Dates: start: 20101029, end: 20101101
  3. VOLTAREN [Concomitant]
     Dosage: UNKNOWN DOSE QD
     Dates: start: 20100617, end: 20101028
  4. METHOTREXATE SODIUM [Concomitant]
     Dates: start: 20100401, end: 20101206
  5. CERTOLIZUMAB PEGOL [Suspect]
     Indication: RHEUMATOID ARTHRITIS
     Dosage: UNKNOWN DOSAGE
     Route: 058
     Dates: end: 20110901
  6. METHOTREXATE SODIUM [Concomitant]
     Indication: RHEUMATOID ARTHRITIS
     Dates: start: 20101207
  7. PREDNISOLONE [Concomitant]
     Indication: RHEUMATOID ARTHRITIS
     Dates: start: 20101202
  8. PREDNISOLONE [Concomitant]
     Dates: start: 20100401, end: 20101014
  9. PREDNISOLONE [Concomitant]
     Dates: start: 20101025, end: 20101030
  10. PREDNISOLONE [Concomitant]
     Dates: start: 20101101, end: 20101201
  11. FOLIC ACID [Concomitant]
     Indication: RHEUMATOID ARTHRITIS
     Dates: start: 20100401

REACTIONS (1)
  - BREAST CANCER IN SITU [None]
